FAERS Safety Report 13843991 (Version 1)
Quarter: 2017Q3

REPORT INFORMATION
  Report Type: Spontaneous
  Country: NZ (occurrence: NZ)
  Receive Date: 20170808
  Receipt Date: 20170808
  Transmission Date: 20171127
  Serious: Yes (Other)
  Sender: FDA-Public Use
  Company Number: NZ-COVIS PHARMA B.V.-2017COV00170

PATIENT
  Sex: Female

DRUGS (2)
  1. CRESTOR [Suspect]
     Active Substance: ROSUVASTATIN CALCIUM
     Dosage: 10 MG, EVERY 48 HOURS
     Dates: start: 2013
  2. OMEPRAZOLE MAGNESIUM. [Suspect]
     Active Substance: OMEPRAZOLE MAGNESIUM

REACTIONS (6)
  - Flatulence [Unknown]
  - Syncope [Unknown]
  - Malaise [Unknown]
  - Headache [Unknown]
  - Pruritus [Unknown]
  - Eructation [Unknown]
